FAERS Safety Report 8520214-9 (Version None)
Quarter: 2012Q3

REPORT INFORMATION
  Report Type: 
  Country: None (occurrence: None)
  Receive Date: 20120709
  Receipt Date: 20120629
  Transmission Date: 20120928
  Serious: Yes (Other)
  Sender: FDA-Public Use
  Company Number: US-008772

PATIENT
  Age: 50 Year
  Sex: Female
  Weight: 72.1219 kg

DRUGS (1)
  1. TRANEXAMIC ACID [Suspect]
     Indication: MENORRHAGIA
     Dosage: TWO TABLETS THREE TIMES DAILY
     Dates: start: 20120523, end: 20120527

REACTIONS (3)
  - HAEMOGLOBIN DECREASED [None]
  - PULMONARY EMBOLISM [None]
  - TACHYCARDIA [None]
